FAERS Safety Report 19556067 (Version 1)
Quarter: 2021Q3

REPORT INFORMATION
  Report Type: Spontaneous
  Country: US (occurrence: US)
  Receive Date: 20210714
  Receipt Date: 20210714
  Transmission Date: 20211014
  Serious: Yes (Death, Other)
  Sender: FDA-Public Use
  Company Number: US-PFIZER INC-2021821286

PATIENT
  Sex: Male

DRUGS (3)
  1. LACTATED RINGERS SOLUTION [Concomitant]
     Active Substance: CALCIUM CHLORIDE\POTASSIUM CHLORIDE\SODIUM CHLORIDE\SODIUM LACTATE
     Dosage: UNK
  2. FENTANYL CITRATE. [Suspect]
     Active Substance: FENTANYL CITRATE
     Dosage: 25 MCG TO 100 MCG PER HOUR
     Route: 042
  3. FENTANYL CITRATE. [Suspect]
     Active Substance: FENTANYL CITRATE
     Indication: SEDATION
     Dosage: 10 UNK
     Route: 042

REACTIONS (4)
  - Overdose [Fatal]
  - Hypotension [Unknown]
  - Tissue anoxia [Unknown]
  - Brain hypoxia [Unknown]

NARRATIVE: CASE EVENT DATE: 2019
